FAERS Safety Report 4823661-1 (Version None)
Quarter: 2005Q4

REPORT INFORMATION
  Report Type: 
  Country: None (occurrence: None)
  Receive Date: 20051109
  Receipt Date: 20051031
  Transmission Date: 20060501
  Serious: Yes (Death)
  Sender: FDA-Public Use
  Company Number: DE-GLAXOSMITHKLINE-B0399526A

PATIENT
  Age: 31 Year
  Sex: Male

DRUGS (4)
  1. ZIDOVUDINE [Suspect]
     Indication: HIV INFECTION
     Dosage: 1000MG PER DAY
     Route: 065
  2. LAMIVUDINE [Suspect]
     Indication: HIV INFECTION
     Route: 065
  3. NELFINAVIR [Suspect]
     Indication: HIV INFECTION
     Route: 065
  4. NEVIRAPINE [Suspect]
     Indication: HIV INFECTION
     Dosage: 400MG UNKNOWN
     Route: 065

REACTIONS (8)
  - CONDITION AGGRAVATED [None]
  - DIPLOPIA [None]
  - ILL-DEFINED DISORDER [None]
  - IMMUNE RECONSTITUTION SYNDROME [None]
  - JC VIRUS INFECTION [None]
  - PROGRESSIVE MULTIFOCAL LEUKOENCEPHALOPATHY [None]
  - QUADRIPARESIS [None]
  - RESPIRATORY FAILURE [None]
